FAERS Safety Report 7705883-5 (Version None)
Quarter: 2011Q3

REPORT INFORMATION
  Report Type: 
  Country: None (occurrence: None)
  Receive Date: 20110824
  Receipt Date: 20110812
  Transmission Date: 20111222
  Serious: Yes (Hospitalization, Other)
  Sender: FDA-Public Use
  Company Number: US-ELI_LILLY_AND_COMPANY-US201007007305

PATIENT
  Age: 51 Year
  Sex: Male

DRUGS (7)
  1. DILAUDID [Concomitant]
  2. LYRICA [Concomitant]
  3. FORTEO [Suspect]
     Dosage: 20 UG, QD
     Route: 065
  4. PERCOCET [Concomitant]
     Dosage: 1 D/F, AS NEEDED
  5. FORTEO [Suspect]
     Indication: OSTEOPOROSIS
     Dosage: 20 UG, QD
     Dates: start: 20100801
  6. ENBREL [Concomitant]
  7. METHOTREXATE [Concomitant]

REACTIONS (10)
  - FALL [None]
  - HIP FRACTURE [None]
  - DRUG DOSE OMISSION [None]
  - DRUG INEFFECTIVE [None]
  - FIBROMYALGIA [None]
  - KIDNEY INFECTION [None]
  - MALAISE [None]
  - RHEUMATOID ARTHRITIS [None]
  - INTERVERTEBRAL DISC DISORDER [None]
  - FOOT FRACTURE [None]
